FAERS Safety Report 25329105 (Version 1)
Quarter: 2025Q2

REPORT INFORMATION
  Report Type: Report from Study
  Country: US (occurrence: US)
  Receive Date: 20250519
  Receipt Date: 20250519
  Transmission Date: 20250716
  Serious: No
  Sender: ASTELLAS
  Company Number: US-ASTELLAS-2025-AER-025286

PATIENT
  Sex: Male

DRUGS (6)
  1. AVACINCAPTAD PEGOL [Suspect]
     Active Substance: AVACINCAPTAD PEGOL
     Indication: Dry age-related macular degeneration
     Route: 050
     Dates: start: 20250508
  2. AVACINCAPTAD PEGOL [Suspect]
     Active Substance: AVACINCAPTAD PEGOL
  3. AVACINCAPTAD PEGOL [Suspect]
     Active Substance: AVACINCAPTAD PEGOL
  4. AVACINCAPTAD PEGOL [Suspect]
     Active Substance: AVACINCAPTAD PEGOL
  5. AVACINCAPTAD PEGOL [Suspect]
     Active Substance: AVACINCAPTAD PEGOL
  6. AVACINCAPTAD PEGOL [Suspect]
     Active Substance: AVACINCAPTAD PEGOL

REACTIONS (1)
  - Product prescribing issue [Unknown]
